FAERS Safety Report 5859717-4 (Version None)
Quarter: 2008Q3

REPORT INFORMATION
  Report Type: 
  Country: None (occurrence: None)
  Receive Date: 20080818
  Receipt Date: 20080709
  Transmission Date: 20090109
  Serious: No
  Sender: FDA-Public Use
  Company Number: WAES 0807USA01522

PATIENT
  Sex: Male

DRUGS (1)
  1. JANUVIA [Suspect]
     Dates: start: 20080401, end: 20080705

REACTIONS (1)
  - MALAISE [None]
